FAERS Safety Report 16652233 (Version 2)
Quarter: 2019Q3

REPORT INFORMATION
  Report Type: Report from Study
  Country: PR (occurrence: PR)
  Receive Date: 20190731
  Receipt Date: 20190909
  Transmission Date: 20191004
  Serious: Yes (Hospitalization, Other)
  Sender: FDA-Public Use
  Company Number: PR-MALLINCKRODT-T201903922

PATIENT
  Sex: Female

DRUGS (9)
  1. SYMBICORT [Suspect]
     Active Substance: BUDESONIDE\FORMOTEROL FUMARATE DIHYDRATE
     Indication: PRODUCT USED FOR UNKNOWN INDICATION
     Dosage: UNK, UNK
     Route: 065
  2. SOLU-MEDROL [Suspect]
     Active Substance: METHYLPREDNISOLONE SODIUM SUCCINATE
     Indication: COUGH
     Dosage: UNK, UNK
     Route: 065
  3. COREG [Suspect]
     Active Substance: CARVEDILOL
     Indication: PRODUCT USED FOR UNKNOWN INDICATION
     Dosage: UNK, UNK
     Route: 065
  4. CELLCEPT [Suspect]
     Active Substance: MYCOPHENOLATE MOFETIL\MYCOPHENOLATE MOFETIL HYDROCHLORIDE
     Indication: PRODUCT USED FOR UNKNOWN INDICATION
     Dosage: UNK, UNK
     Route: 065
  5. REPOSITORY CORTICOTROPIN INJECTION [Suspect]
     Active Substance: CORTICOTROPIN
     Indication: NEPHROTIC SYNDROME
  6. BREO ELLIPTA [Concomitant]
     Active Substance: FLUTICASONE FUROATE\VILANTEROL TRIFENATATE
     Indication: PRODUCT USED FOR UNKNOWN INDICATION
     Dosage: UNK (INHALATION), ONCE A DAY
     Route: 055
  7. REPOSITORY CORTICOTROPIN INJECTION [Suspect]
     Active Substance: CORTICOTROPIN
     Indication: PROTEINURIA
     Dosage: 60 UNITS/0.75 ML, EVERY 3 DAYS/EVERY 72 HOURS
     Route: 058
     Dates: start: 20150803, end: 2019
  8. SOLU-MEDROL [Suspect]
     Active Substance: METHYLPREDNISOLONE SODIUM SUCCINATE
     Dosage: UNK
     Route: 065
  9. ALBUTEROL. [Suspect]
     Active Substance: ALBUTEROL
     Indication: PRODUCT USED FOR UNKNOWN INDICATION
     Dosage: UNK, UNK
     Route: 065

REACTIONS (32)
  - Pleural effusion [Unknown]
  - Carotid artery aneurysm [Unknown]
  - Pneumonia [Unknown]
  - Fatigue [Unknown]
  - Alopecia [Unknown]
  - Emotional distress [Unknown]
  - Limb injury [Unknown]
  - Skin erosion [Unknown]
  - Cushingoid [Not Recovered/Not Resolved]
  - Pleurisy [Unknown]
  - Transient ischaemic attack [Unknown]
  - Dysarthria [Unknown]
  - Gait disturbance [Unknown]
  - Contusion [Unknown]
  - Blood pressure increased [Unknown]
  - Oedema [Recovering/Resolving]
  - Insomnia [Unknown]
  - Macular oedema [Unknown]
  - Blindness unilateral [Unknown]
  - Bronchitis [Unknown]
  - Feeling abnormal [Unknown]
  - Asthma [Unknown]
  - Weight fluctuation [Unknown]
  - Pulmonary hypertension [Unknown]
  - Haematoma [Not Recovered/Not Resolved]
  - Depression [Unknown]
  - Peripheral swelling [Unknown]
  - Carotid artery stent insertion [Unknown]
  - Wheelchair user [Unknown]
  - Arthralgia [Unknown]
  - Systemic lupus erythematosus [Unknown]
  - Tinnitus [Not Recovered/Not Resolved]

NARRATIVE: CASE EVENT DATE: 2019
